FAERS Safety Report 20054862 (Version 2)
Quarter: 2021Q4

REPORT INFORMATION
  Report Type: Report from Study
  Country: US (occurrence: US)
  Receive Date: 20211110
  Receipt Date: 20211115
  Transmission Date: 20220303
  Serious: No
  Sender: FDA-Public Use
  Company Number: US-NOVARTISTESTPH-NVSC2021US251923

PATIENT
  Age: 51 Year
  Sex: Male

DRUGS (1)
  1. ENTRESTO [Suspect]
     Active Substance: SACUBITRIL\VALSARTAN
     Indication: Cardiac failure
     Dosage: 200 MG, BID(97/103 MG)
     Route: 048
     Dates: start: 20210706

REACTIONS (2)
  - Bundle branch block left [Unknown]
  - Weight decreased [Unknown]

NARRATIVE: CASE EVENT DATE: 20210701
